FAERS Safety Report 21242752 (Version 1)
Quarter: 2022Q3

REPORT INFORMATION
  Report Type: Spontaneous
  Country: CN (occurrence: CN)
  Receive Date: 20220823
  Receipt Date: 20220823
  Transmission Date: 20221027
  Serious: Yes (Other)
  Sender: FDA-Public Use
  Company Number: CN-BAYER-2022A116789

PATIENT
  Age: 20 Year
  Sex: Male
  Weight: 60 kg

DRUGS (1)
  1. LORATADINE [Suspect]
     Active Substance: LORATADINE
     Indication: Pelvic fracture
     Dosage: 10 MG, QD
     Route: 048
     Dates: start: 20220812, end: 20220816

REACTIONS (2)
  - Drug-induced liver injury [Unknown]
  - Off label use [None]

NARRATIVE: CASE EVENT DATE: 20220812
